FAERS Safety Report 17994632 (Version 2)
Quarter: 2020Q3

REPORT INFORMATION
  Report Type: Spontaneous
  Country: BR (occurrence: BR)
  Receive Date: 20200708
  Receipt Date: 20200814
  Transmission Date: 20201103
  Serious: Yes (Death, Hospitalization, Other)
  Sender: FDA-Public Use
  Company Number: BR-GLAXOSMITHKLINE-BR2020AMR104352

PATIENT
  Sex: Male
  Weight: 50 kg

DRUGS (6)
  1. CLAVULIN [Suspect]
     Active Substance: AMOXICILLIN\CLAVULANATE POTASSIUM
     Indication: COVID-19
     Dosage: UNK
  2. AZITHROMYCIN ANHYDROUS. [Suspect]
     Active Substance: AZITHROMYCIN ANHYDROUS
     Indication: COVID-19
     Dosage: UNK
  3. ZINNAT [Suspect]
     Active Substance: CEFUROXIME
     Indication: PNEUMONIA BACTERIAL
  4. AZITHROMYCIN ANHYDROUS. [Suspect]
     Active Substance: AZITHROMYCIN ANHYDROUS
     Indication: PNEUMONIA BACTERIAL
  5. CLAVULIN [Suspect]
     Active Substance: AMOXICILLIN\CLAVULANATE POTASSIUM
     Indication: PNEUMONIA BACTERIAL
  6. ZINNAT [Suspect]
     Active Substance: CEFUROXIME
     Indication: COVID-19
     Dosage: UNK

REACTIONS (9)
  - Neoplasm prostate [Fatal]
  - Drug ineffective [Unknown]
  - Metastases to lung [Unknown]
  - Erysipelas [Unknown]
  - Loss of consciousness [Unknown]
  - Product prescribing issue [Unknown]
  - Product use in unapproved indication [Unknown]
  - Pneumonia bacterial [Fatal]
  - Diarrhoea [Not Recovered/Not Resolved]
